FAERS Safety Report 6093649-4 (Version None)
Quarter: 2009Q1

REPORT INFORMATION
  Report Type: 
  Country: None (occurrence: None)
  Receive Date: 20090226
  Receipt Date: 20090223
  Transmission Date: 20090719
  Serious: Yes (Life-Threatening, Hospitalization)
  Sender: FDA-Public Use
  Company Number: PHHY2009FR06395

PATIENT
  Sex: Female

DRUGS (3)
  1. LESCOL [Suspect]
     Dosage: 20 MG, QD
     Route: 048
     Dates: start: 20060101, end: 20090116
  2. KARDEGIC [Concomitant]
     Dosage: UNK
  3. ZOLOFT [Concomitant]
     Dosage: UNK

REACTIONS (10)
  - BLOOD CREATINE PHOSPHOKINASE INCREASED [None]
  - DYSPNOEA [None]
  - FALL [None]
  - GENERAL PHYSICAL HEALTH DETERIORATION [None]
  - HYPOCAPNIA [None]
  - HYPOXIA [None]
  - MYALGIA [None]
  - MYOGLOBINAEMIA [None]
  - RENAL FAILURE CHRONIC [None]
  - RHABDOMYOLYSIS [None]
